FAERS Safety Report 6782786-4 (Version None)
Quarter: 2010Q2

REPORT INFORMATION
  Report Type: 
  Country: None (occurrence: None)
  Receive Date: 20100616
  Receipt Date: 20100609
  Transmission Date: 20101027
  Serious: Yes (Death)
  Sender: FDA-Public Use
  Company Number: 2010JP003365

PATIENT
  Age: 65 Year
  Sex: Male

DRUGS (4)
  1. TACROLIMUS [Suspect]
     Indication: LIVER TRANSPLANT
  2. CORTICOSTEROIDS FORMULATION UNKNOWN [Concomitant]
  3. METHYLPREDNISOLONE [Concomitant]
  4. ANTIHYMOCYTE GLOBULIN FORMULATION UNKNOWN [Concomitant]

REACTIONS (9)
  - BILIARY TRACT DISORDER [None]
  - CEREBRAL FUNGAL INFECTION [None]
  - COMA [None]
  - CYTOMEGALOVIRUS TEST POSITIVE [None]
  - HEPATIC NECROSIS [None]
  - LYMPHOCYTE COUNT DECREASED [None]
  - MUCORMYCOSIS [None]
  - NEUTROPHIL COUNT DECREASED [None]
  - WHITE BLOOD CELL COUNT DECREASED [None]
